FAERS Safety Report 23139351 (Version 1)
Quarter: 2023Q4

REPORT INFORMATION
  Report Type: Spontaneous
  Country: US (occurrence: None)
  Receive Date: 20231102
  Receipt Date: 20231102
  Transmission Date: 20240110
  Serious: No
  Sender: FDA-Public Use
  Company Number: None

PATIENT
  Sex: Female

DRUGS (2)
  1. SKYRIZI [Suspect]
     Active Substance: RISANKIZUMAB-RZAA
     Indication: Psoriasis
     Dosage: OTHER FREQUENCY : EVERY 12 WEEKS;?
     Route: 058
     Dates: start: 202307
  2. HUMIRA [Concomitant]
     Active Substance: ADALIMUMAB

REACTIONS (4)
  - Drug ineffective [None]
  - Osteomyelitis [None]
  - Therapy cessation [None]
  - Arthritis [None]
